FAERS Safety Report 4890021-7 (Version None)
Quarter: 2006Q1

REPORT INFORMATION
  Report Type: 
  Country: None (occurrence: None)
  Receive Date: 20060124
  Receipt Date: 20051206
  Transmission Date: 20060701
  Serious: Yes (Other)
  Sender: FDA-Public Use
  Company Number: GB-ROCHE-428069

PATIENT
  Age: 52 Year
  Sex: Female
  Weight: 144.2 kg

DRUGS (10)
  1. XENICAL [Suspect]
     Indication: OBESITY
     Route: 048
     Dates: start: 20051026
  2. BENDROFLUMETHIAZIDUM [Concomitant]
     Route: 048
  3. PANTOPRAZOLE [Concomitant]
     Route: 048
  4. THYROXINE [Concomitant]
     Route: 048
  5. CO-CODAMOL [Concomitant]
     Dosage: DOSE: 30/500.
     Route: 048
  6. ESCITALOPRAM OXALATE [Concomitant]
     Route: 048
  7. ROSIGLITAZONE [Concomitant]
     Route: 048
  8. LACIDIPINE [Concomitant]
  9. GLICLAZIDE [Concomitant]
  10. FRUSEMIDE [Concomitant]
     Route: 048

REACTIONS (3)
  - GASTROINTESTINAL HAEMORRHAGE [None]
  - HAEMORRHOIDS [None]
  - RECTAL HAEMORRHAGE [None]
